FAERS Safety Report 7639664-8 (Version None)
Quarter: 2011Q3

REPORT INFORMATION
  Report Type: 
  Country: None (occurrence: None)
  Receive Date: 20110727
  Receipt Date: 20100611
  Transmission Date: 20111222
  Serious: No
  Sender: FDA-Public Use
  Company Number: US-MYLANLABS-2010S1010474

PATIENT
  Age: 80 Year
  Sex: Female
  Weight: 58.97 kg

DRUGS (4)
  1. HYDROCODONE BITARTRATE [Concomitant]
     Indication: PAIN IN EXTREMITY
  2. BLOOD PRESSURE MEDICATION [Concomitant]
     Indication: HYPERTENSION
  3. MIRTAZAPINE [Suspect]
     Indication: DEPRESSION
     Route: 048
     Dates: start: 20081001, end: 20081205
  4. AMITRIPTYLINE HCL [Suspect]
     Indication: DEPRESSION
     Route: 048
     Dates: start: 20081027, end: 20081205

REACTIONS (5)
  - HALLUCINATION [None]
  - CONFUSIONAL STATE [None]
  - PANIC ATTACK [None]
  - AMNESIA [None]
  - ANXIETY [None]
